FAERS Safety Report 24667897 (Version 1)
Quarter: 2024Q4

REPORT INFORMATION
  Report Type: Spontaneous
  Country: IT (occurrence: IT)
  Receive Date: 20241127
  Receipt Date: 20241127
  Transmission Date: 20250114
  Serious: Yes (Other)
  Sender: NOVO NORDISK
  Company Number: None

PATIENT
  Age: 26 Year
  Sex: Male

DRUGS (2)
  1. TRESIBA [Suspect]
     Active Substance: INSULIN DEGLUDEC
     Indication: Product used for unknown indication
     Dosage: UNK, START AND END DATE OF ADMINISTRATION NOT AVAILABLE.
  2. NOVORAPID [Suspect]
     Active Substance: INSULIN ASPART
     Indication: Product used for unknown indication
     Dosage: UNK, START AND END DATE OF ADMINISTRATION NOT AVAILABLE.

REACTIONS (2)
  - Diabetic ketoacidosis [Unknown]
  - Vomiting [Unknown]

NARRATIVE: CASE EVENT DATE: 20241109
